FAERS Safety Report 9449241 (Version 1)
Quarter: 2013Q3

REPORT INFORMATION
  Report Type: Spontaneous
  Country: US (occurrence: US)
  Receive Date: 20130808
  Receipt Date: 20130808
  Transmission Date: 20140515
  Serious: Yes (Death, Hospitalization)
  Sender: FDA-Public Use
  Company Number: US-GLAXOSMITHKLINE-A1036318A

PATIENT
  Age: 59 Year
  Sex: Male

DRUGS (20)
  1. ADVAIR [Suspect]
     Indication: CHRONIC OBSTRUCTIVE PULMONARY DISEASE
     Dosage: 1PUFF PER DAY
     Route: 055
  2. VENTOLIN HFA [Suspect]
     Indication: CHRONIC OBSTRUCTIVE PULMONARY DISEASE
     Dosage: 2PUFF AS REQUIRED
     Route: 055
  3. PREDNISONE [Concomitant]
  4. PAROXETINE [Concomitant]
  5. TAMSULOSIN [Concomitant]
  6. PANTOPRAZOLE [Concomitant]
  7. JANTOVEN [Concomitant]
  8. LISINOPRIL [Concomitant]
  9. AVAPRO [Concomitant]
  10. LORAZEPAM [Concomitant]
  11. SPIRONOLACTONE [Concomitant]
  12. KLOR-CON [Concomitant]
  13. TORSEMIDE [Concomitant]
  14. ATORVASTATIN [Concomitant]
  15. AMIODARONE [Concomitant]
  16. PLAVIX [Concomitant]
  17. ISOSORBIDE MONONITRATE [Concomitant]
  18. GABAPENTIN [Concomitant]
  19. CARVEDILOL [Concomitant]
  20. SPIRIVA [Concomitant]

REACTIONS (2)
  - Cardiac failure congestive [Fatal]
  - Off label use [Unknown]
